FAERS Safety Report 8680369 (Version 8)
Quarter: 2013Q4

REPORT INFORMATION
  Report Type: Spontaneous
  Country: US (occurrence: US)
  Receive Date: 20120724
  Receipt Date: 20131230
  Transmission Date: 20140711
  Serious: Yes (Hospitalization, Disabling, Other)
  Sender: FDA-Public Use
  Company Number: US-009507513-1207USA007197

PATIENT
  Sex: Female
  Weight: 63.49 kg

DRUGS (3)
  1. FOSAMAX [Suspect]
     Route: 048
  2. ACTONEL [Suspect]
     Indication: OSTEOPENIA
     Dosage: 35 MG, UNK
     Dates: start: 20060407, end: 20080226
  3. BONIVA [Suspect]
     Indication: OSTEOPENIA
     Dosage: 150 MG, UNK
     Dates: start: 20080410, end: 201110

REACTIONS (32)
  - Femur fracture [Unknown]
  - Intramedullary rod insertion [Unknown]
  - Intramedullary rod insertion [Unknown]
  - Hypotension [Recovered/Resolved]
  - Osteonecrosis [Unknown]
  - Femur fracture [Not Recovered/Not Resolved]
  - Joint dislocation [Unknown]
  - Anaemia [Unknown]
  - Haemoglobin decreased [Unknown]
  - Hyperlipidaemia [Unknown]
  - Osteoporosis [Unknown]
  - Post procedural haemorrhage [Unknown]
  - Renal stone removal [Unknown]
  - Fracture [Unknown]
  - Breast operation [Unknown]
  - Temporomandibular joint syndrome [Recovering/Resolving]
  - Arthritis [Unknown]
  - Adhesion [Unknown]
  - Spinal osteoarthritis [Unknown]
  - Kyphosis [Unknown]
  - Foot operation [Unknown]
  - Bursitis [Unknown]
  - Hand fracture [Recovered/Resolved]
  - Arthrodesis [Unknown]
  - Vertebral foraminal stenosis [Unknown]
  - Synovial cyst [Unknown]
  - Arthralgia [Unknown]
  - Myalgia [Unknown]
  - Headache [Recovering/Resolving]
  - Muscle spasms [Unknown]
  - Dizziness [Unknown]
  - Dyspepsia [Unknown]
